FAERS Safety Report 6743255-0 (Version None)
Quarter: 2010Q2

REPORT INFORMATION
  Report Type: 
  Country: None (occurrence: None)
  Receive Date: 20100527
  Receipt Date: 20100527
  Transmission Date: 20101027
  Serious: No
  Sender: FDA-Public Use
  Company Number: None

PATIENT
  Age: 25 Year
  Sex: Male
  Weight: 72.5755 kg

DRUGS (2)
  1. ZYRTEC [Suspect]
     Indication: SEASONAL ALLERGY
     Dosage: 10 ML DAILY PO TAKEN FOR A COUPLE OF YEA
     Route: 048
  2. ZYRTEC [Suspect]
     Indication: SINUS CONGESTION
     Dosage: 10 ML DAILY PO TAKEN FOR A COUPLE OF YEA
     Route: 048

REACTIONS (6)
  - ABDOMINAL PAIN UPPER [None]
  - DIARRHOEA [None]
  - GASTROINTESTINAL DISORDER [None]
  - NAUSEA [None]
  - PRODUCT QUALITY ISSUE [None]
  - VOMITING [None]
